FAERS Safety Report 6181566-0 (Version None)
Quarter: 2009Q2

REPORT INFORMATION
  Report Type: 
  Country: None (occurrence: None)
  Receive Date: 20090506
  Receipt Date: 20090430
  Transmission Date: 20091009
  Serious: Yes (Other)
  Sender: FDA-Public Use
  Company Number: US-JNJFOC-20090500895

PATIENT
  Sex: Female
  Weight: 108.86 kg

DRUGS (6)
  1. DURAGESIC-100 [Suspect]
     Indication: BACK PAIN
     Route: 062
  2. TOPAMAX [Concomitant]
     Indication: CONVULSION
     Route: 048
  3. TRILEPTAL [Concomitant]
     Indication: CONVULSION
     Route: 048
  4. ZANAFLEX [Concomitant]
     Indication: MUSCLE SPASMS
     Route: 048
  5. MORPHINE SULFATE [Concomitant]
     Indication: BREAKTHROUGH PAIN
     Route: 048
  6. EFFEXOR XR [Concomitant]
     Indication: DEPRESSION
     Route: 048

REACTIONS (5)
  - DYSPEPSIA [None]
  - INAPPROPRIATE SCHEDULE OF DRUG ADMINISTRATION [None]
  - MIGRAINE [None]
  - THYROID DISORDER [None]
  - VARICOSE VEIN [None]
